FAERS Safety Report 23457649 (Version 1)
Quarter: 2024Q1

REPORT INFORMATION
  Report Type: Spontaneous
  Country: US (occurrence: US)
  Receive Date: 20240130
  Receipt Date: 20240130
  Transmission Date: 20240409
  Serious: No
  Sender: FDA-Public Use
  Company Number: US-GALDERMA-US2023018656

PATIENT

DRUGS (3)
  1. SOOLANTRA [Suspect]
     Active Substance: IVERMECTIN
     Indication: Rosacea
     Dosage: 1 DOSAGE FORM
     Route: 061
  2. COSMETICS [Suspect]
     Active Substance: COSMETICS
     Indication: Product used for unknown indication
     Dosage: 1 DOSAGE FORM, BID ONCE IN THE MORNING AND AGAIN IN THE EVENING
     Route: 061
     Dates: start: 202311, end: 202311
  3. COSMETICS [Suspect]
     Active Substance: COSMETICS
     Dosage: 1 DOSAGE FORM
     Route: 061
     Dates: start: 2023, end: 2023

REACTIONS (2)
  - Rosacea [Recovered/Resolved]
  - Rash papular [Recovered/Resolved]

NARRATIVE: CASE EVENT DATE: 20231101
